FAERS Safety Report 9256442 (Version 2)
Quarter: 2013Q2

REPORT INFORMATION
  Report Type: Spontaneous
  Country: IN (occurrence: IN)
  Receive Date: 20130426
  Receipt Date: 20130509
  Transmission Date: 20140414
  Serious: Yes (Death)
  Sender: FDA-Public Use
  Company Number: IN-009507513-1304IND015260

PATIENT
  Age: 72 Year
  Sex: 0

DRUGS (2)
  1. JANUMET [Suspect]
     Dosage: 2 DF, QD
     Route: 048
  2. INSULIN [Concomitant]

REACTIONS (1)
  - Death [Fatal]
